FAERS Safety Report 5947734-5 (Version None)
Quarter: 2008Q4

REPORT INFORMATION
  Report Type: 
  Country: None (occurrence: None)
  Receive Date: 20081110
  Receipt Date: 20081110
  Transmission Date: 20090506
  Serious: Yes (Death, Hospitalization)
  Sender: FDA-Public Use
  Company Number: None

PATIENT
  Age: 78 Year
  Sex: Female
  Weight: 58.0604 kg

DRUGS (1)
  1. HEPARIN [Suspect]
     Indication: CARDIAC OPERATION

REACTIONS (3)
  - POOR QUALITY DRUG ADMINISTERED [None]
  - PRODUCT CONTAMINATION [None]
  - THERAPEUTIC AGENT TOXICITY [None]
